FAERS Safety Report 4405034-9 (Version None)
Quarter: 2004Q3

REPORT INFORMATION
  Report Type: 
  Country: None (occurrence: None)
  Receive Date: 20040715
  Receipt Date: 20040618
  Transmission Date: 20050211
  Serious: Yes (Other)
  Sender: FDA-Public Use
  Company Number: 138919USA

PATIENT
  Age: 59 Year
  Sex: Female
  Weight: 80 kg

DRUGS (11)
  1. COPAXONE [Suspect]
     Indication: MULTIPLE SCLEROSIS
     Dates: start: 19990528, end: 20030701
  2. TRIAMTERENE [Concomitant]
  3. SYNTHROID [Concomitant]
  4. CELEBREX [Concomitant]
  5. BENICAR [Concomitant]
  6. PAXIL [Concomitant]
  7. AMITRIPTYLINE HCL [Concomitant]
  8. ULTRAM [Concomitant]
  9. CALCIUM SUPPLEMENT [Concomitant]
  10. NSAID'S [Concomitant]
  11. BAYCOL [Concomitant]

REACTIONS (6)
  - BLOOD CHOLESTEROL INCREASED [None]
  - BLOOD THYROID STIMULATING HORMONE INCREASED [None]
  - HEPATIC STEATOSIS [None]
  - HEPATITIS [None]
  - MULTIPLE SCLEROSIS [None]
  - TREATMENT NONCOMPLIANCE [None]
